FAERS Safety Report 11399856 (Version 5)
Quarter: 2016Q2

REPORT INFORMATION
  Report Type: Report from Study
  Country: RO (occurrence: RO)
  Receive Date: 20150820
  Receipt Date: 20160519
  Transmission Date: 20160815
  Serious: Yes (Death, Life-Threatening, Other)
  Sender: FDA-Public Use
  Company Number: RO-ABBVIE-15P-135-1448005-00

PATIENT
  Age: 58 Year
  Sex: Female
  Weight: 37 kg

DRUGS (5)
  1. RISOLEPT [Concomitant]
     Active Substance: RISPERIDONE
     Indication: PRODUCT USED FOR UNKNOWN INDICATION
     Dosage: 2ML/DAY
  2. PRAMISAR [Concomitant]
     Indication: PRODUCT USED FOR UNKNOWN INDICATION
  3. ANXIAR [Concomitant]
     Indication: PRODUCT USED FOR UNKNOWN INDICATION
  4. DUODOPA [Suspect]
     Active Substance: CARBIDOPA\LEVODOPA
     Indication: PARKINSON^S DISEASE
     Dosage: MD 7 ML, CR 3 ML/H, ED 2 ML.
     Route: 050
     Dates: start: 20150421, end: 201605
  5. NICERGOLIN [Concomitant]
     Indication: PRODUCT USED FOR UNKNOWN INDICATION

REACTIONS (16)
  - Ureteric stenosis [Not Recovered/Not Resolved]
  - Foaming at mouth [Unknown]
  - Blister [Not Recovered/Not Resolved]
  - Decubitus ulcer [Not Recovered/Not Resolved]
  - Unintentional medical device removal [Unknown]
  - Jaundice [Unknown]
  - Death [Fatal]
  - Diet refusal [Unknown]
  - Mouth haemorrhage [Unknown]
  - Unevaluable event [Unknown]
  - Unresponsive to stimuli [Unknown]
  - Hyperventilation [Unknown]
  - Haematuria [Unknown]
  - Hallucination [Not Recovered/Not Resolved]
  - Renal failure [Not Recovered/Not Resolved]
  - Incorrect route of drug administration [Unknown]

NARRATIVE: CASE EVENT DATE: 20150811
